FAERS Safety Report 12630460 (Version 3)
Quarter: 2016Q4

REPORT INFORMATION
  Report Type: Spontaneous
  Country: US (occurrence: US)
  Receive Date: 20160808
  Receipt Date: 20161014
  Transmission Date: 20170207
  Serious: No
  Sender: FDA-Public Use
  Company Number: US-PFIZER INC-2016342266

PATIENT
  Age: 83 Year
  Sex: Female

DRUGS (1)
  1. VERAPAMIL HCL [Suspect]
     Active Substance: VERAPAMIL HYDROCHLORIDE
     Indication: HYPERTENSION
     Dosage: 120 MG, DAILY
     Route: 048

REACTIONS (1)
  - Headache [Not Recovered/Not Resolved]
